FAERS Safety Report 13225515 (Version 1)
Quarter: 2017Q1

REPORT INFORMATION
  Report Type: Other
  Country: US (occurrence: US)
  Receive Date: 20170213
  Receipt Date: 20170213
  Transmission Date: 20170428
  Serious: Yes (Life-Threatening, Hospitalization, Disabling, Other)
  Sender: FDA-Public Use
  Company Number: US-ACORDA-ACO_132841_2017

PATIENT
  Age: 54 Year
  Sex: Male

DRUGS (1)
  1. AMPYRA [Suspect]
     Active Substance: DALFAMPRIDINE
     Indication: GAIT DISTURBANCE
     Dosage: 10 MG, BID
     Route: 048
     Dates: start: 201603, end: 201604

REACTIONS (8)
  - Condition aggravated [Not Recovered/Not Resolved]
  - Wheelchair user [Unknown]
  - Therapy cessation [Not Recovered/Not Resolved]
  - Abasia [Not Recovered/Not Resolved]
  - Speech disorder [Unknown]
  - Multiple sclerosis [Unknown]
  - Dyspnoea [Unknown]
  - Feeling hot [Unknown]

NARRATIVE: CASE EVENT DATE: 20161217
